FAERS Safety Report 4416900-2 (Version None)
Quarter: 2004Q3

REPORT INFORMATION
  Report Type: 
  Country: None (occurrence: None)
  Receive Date: 20040806
  Receipt Date: 20040719
  Transmission Date: 20050211
  Serious: Yes (Congenital Anomaly)
  Sender: FDA-Public Use
  Company Number: US-BRISTOL-MYERS SQUIBB COMPANY-12645404

PATIENT
  Sex: Male

DRUGS (4)
  1. SUSTIVA [Suspect]
     Route: 064
     Dates: end: 20031219
  2. VIREAD [Suspect]
     Route: 064
  3. EPIVIR [Suspect]
     Route: 064
  4. VIRAMUNE [Suspect]
     Route: 064
     Dates: start: 20031219

REACTIONS (2)
  - MENINGOMYELOCELE [None]
  - PREGNANCY [None]
